FAERS Safety Report 5035210-6 (Version None)
Quarter: 2006Q2

REPORT INFORMATION
  Report Type: 
  Country: None (occurrence: None)
  Receive Date: 20060522
  Receipt Date: 20060215
  Transmission Date: 20061013
  Serious: Yes (Other)
  Sender: FDA-Public Use
  Company Number: US-JNJFOC-20051204218

PATIENT
  Age: 71 Year
  Sex: Female
  Weight: 97.0698 kg

DRUGS (1)
  1. RISPERDAL CONSTA [Suspect]
     Indication: MENTAL DISORDER
     Dosage: 50 MG, 1 IN 2 WEEK
     Dates: start: 20040101

REACTIONS (4)
  - BREAST SWELLING [None]
  - TARDIVE DYSKINESIA [None]
  - TREMOR [None]
  - VISUAL DISTURBANCE [None]
